FAERS Safety Report 9904867 (Version 4)
Quarter: 2014Q3

REPORT INFORMATION
  Report Type: Spontaneous
  Country: DE (occurrence: DE)
  Receive Date: 20140218
  Receipt Date: 20140912
  Transmission Date: 20150326
  Serious: Yes (Death, Other)
  Sender: FDA-Public Use
  Company Number: DE-PFIZER INC-2014041310

PATIENT
  Age: 87 Year
  Sex: Female

DRUGS (4)
  1. CLEXANE [Suspect]
     Active Substance: ENOXAPARIN SODIUM
     Indication: ISCHAEMIA
     Dosage: 0.4 MG, 1X/DAY
     Route: 058
  2. CLEXANE [Suspect]
     Active Substance: ENOXAPARIN SODIUM
     Dosage: 0.6 MG, 2X/DAY
     Route: 058
     Dates: start: 20130225
  3. ASPIRIN. [Suspect]
     Active Substance: ASPIRIN
     Dosage: 100 MG, 1X/DAY
     Route: 048
  4. TREVILOR RETARD [Suspect]
     Active Substance: VENLAFAXINE HYDROCHLORIDE
     Indication: DEMENTIA ALZHEIMER^S TYPE
     Dosage: 75 MG, 1X/DAY

REACTIONS (3)
  - Cardiomegaly [Unknown]
  - Atrial flutter [Fatal]
  - Off label use [Unknown]

NARRATIVE: CASE EVENT DATE: 20130225
